FAERS Safety Report 10571754 (Version 1)
Quarter: 2014Q4

REPORT INFORMATION
  Report Type: Spontaneous
  Country: US (occurrence: US)
  Receive Date: 20141107
  Receipt Date: 20141107
  Transmission Date: 20150529
  Serious: Yes (Other)
  Sender: FDA-Public Use
  Company Number: US-GLAXOSMITHKLINE-US2014GSK017199

PATIENT
  Age: 67 Year
  Sex: Female

DRUGS (10)
  1. SYMBICORT [Concomitant]
     Active Substance: BUDESONIDE\FORMOTEROL FUMARATE DIHYDRATE
  2. PROVENTIL [Concomitant]
     Active Substance: ALBUTEROL
  3. ASPIRIN (BABY) [Concomitant]
  4. NASONEX [Concomitant]
     Active Substance: MOMETASONE FUROATE
  5. REQUIP [Suspect]
     Active Substance: ROPINIROLE HYDROCHLORIDE
     Indication: RESTLESS LEGS SYNDROME
     Dosage: 1 MG, QD
     Route: 048
     Dates: start: 2012
  6. LORATADINE. [Concomitant]
     Active Substance: LORATADINE
  7. CALCIUM [Concomitant]
     Active Substance: CALCIUM
  8. SPIRIVA [Concomitant]
     Active Substance: TIOTROPIUM BROMIDE MONOHYDRATE
  9. SIMVASTATIN. [Concomitant]
     Active Substance: SIMVASTATIN
  10. ATENOLOL. [Concomitant]
     Active Substance: ATENOLOL

REACTIONS (3)
  - Exostosis [Recovered/Resolved]
  - Rotator cuff repair [Recovered/Resolved]
  - Rotator cuff syndrome [Recovered/Resolved]

NARRATIVE: CASE EVENT DATE: 2014
